FAERS Safety Report 4646176-2 (Version None)
Quarter: 2005Q2

REPORT INFORMATION
  Report Type: 
  Country: None (occurrence: None)
  Receive Date: 20050422
  Receipt Date: 20050418
  Transmission Date: 20051028
  Serious: Yes (Hospitalization, Other)
  Sender: FDA-Public Use
  Company Number: CHPA2003US02252

PATIENT
  Age: 32 Year
  Sex: Female

DRUGS (4)
  1. EX-LAX UNKNOWN (NCH) (UNKNOWN) UNKNOWN [Suspect]
     Dosage: ORAL
     Route: 048
     Dates: start: 19920101
  2. DULCOLAX [Suspect]
     Dosage: ORAL
     Route: 048
     Dates: start: 19920101
  3. FEEN-A-MINT (PHENOLPHTHALEIN) [Suspect]
     Dosage: ORAL
     Route: 048
     Dates: start: 19920101
  4. CORRECTOL [Suspect]
     Dosage: ORAL
     Route: 048
     Dates: start: 19920101

REACTIONS (15)
  - ABDOMINAL PAIN [None]
  - ABDOMINAL PAIN LOWER [None]
  - ANAEMIA [None]
  - DRUG DEPENDENCE [None]
  - ECONOMIC PROBLEM [None]
  - EMOTIONAL DISORDER [None]
  - FLATULENCE [None]
  - HAEMORRHOIDS [None]
  - INJURY [None]
  - NAUSEA [None]
  - PELVIC MASS [None]
  - PELVIC PAIN [None]
  - PELVIC PERITONEAL ADHESIONS [None]
  - VAGINITIS ATROPHIC [None]
  - VOMITING [None]
